FAERS Safety Report 6370875-8 (Version None)
Quarter: 2009Q3

REPORT INFORMATION
  Report Type: 
  Country: None (occurrence: None)
  Receive Date: 20090923
  Receipt Date: 20070627
  Transmission Date: 20100115
  Serious: Yes (Hospitalization)
  Sender: FDA-Public Use
  Company Number: US-ASTRAZENECA-2006UW22617

PATIENT
  Age: 12616 Day
  Sex: Female
  Weight: 81.6 kg

DRUGS (22)
  1. SEROQUEL [Suspect]
     Indication: ANXIETY
     Route: 048
     Dates: start: 20030101, end: 20041223
  2. SEROQUEL [Suspect]
     Indication: DEPRESSION
     Route: 048
     Dates: start: 20030101, end: 20041223
  3. SEROQUEL [Suspect]
     Indication: INSOMNIA
     Route: 048
     Dates: start: 20030101, end: 20041223
  4. SEROQUEL [Suspect]
     Dosage: 25MG AM, 50-100MG PM
     Route: 048
     Dates: start: 20060525, end: 20070312
  5. SEROQUEL [Suspect]
     Dosage: 25MG AM, 50-100MG PM
     Route: 048
     Dates: start: 20060525, end: 20070312
  6. SEROQUEL [Suspect]
     Dosage: 25MG AM, 50-100MG PM
     Route: 048
     Dates: start: 20060525, end: 20070312
  7. SEROQUEL [Suspect]
     Dosage: 50MG AM, 50MG NOON, 100MG PM
     Route: 048
     Dates: start: 20070312
  8. SEROQUEL [Suspect]
     Dosage: 50MG AM, 50MG NOON, 100MG PM
     Route: 048
     Dates: start: 20070312
  9. SEROQUEL [Suspect]
     Dosage: 50MG AM, 50MG NOON, 100MG PM
     Route: 048
     Dates: start: 20070312
  10. SEROQUEL [Suspect]
     Dosage: 50MG AM, 100MG PM
     Route: 048
     Dates: start: 20041223, end: 20060330
  11. SEROQUEL [Suspect]
     Dosage: 50MG AM, 100MG PM
     Route: 048
     Dates: start: 20041223, end: 20060330
  12. SEROQUEL [Suspect]
     Dosage: 50MG AM, 100MG PM
     Route: 048
     Dates: start: 20041223, end: 20060330
  13. KLONOPIN [Concomitant]
     Dates: start: 20010103, end: 20060630
  14. AMOXIL [Concomitant]
     Dates: start: 20060220, end: 20060220
  15. PROZAC [Concomitant]
     Dates: start: 20041223
  16. LEXAPRO [Concomitant]
     Dates: start: 20041201
  17. PREVACID [Concomitant]
     Dates: start: 20031125
  18. VICODIN [Concomitant]
  19. DARVOCET [Concomitant]
  20. NEURONTIN [Concomitant]
  21. VOLTAREN [Concomitant]
  22. CELEBREX [Concomitant]

REACTIONS (8)
  - GASTROOESOPHAGEAL REFLUX DISEASE [None]
  - HAEMATOCRIT DECREASED [None]
  - LIVER FUNCTION TEST ABNORMAL [None]
  - PANCREATITIS ACUTE [None]
  - SINUS BRADYCARDIA [None]
  - SINUSITIS [None]
  - SKIN LESION [None]
  - VAGINITIS BACTERIAL [None]
